FAERS Safety Report 6209673-4 (Version None)
Quarter: 2009Q2

REPORT INFORMATION
  Report Type: 
  Country: None (occurrence: None)
  Receive Date: 20090601
  Receipt Date: 20090528
  Transmission Date: 20091009
  Serious: Yes (Other)
  Sender: FDA-Public Use
  Company Number: US-ASTRAZENECA-2009AC01583

PATIENT
  Sex: Male

DRUGS (1)
  1. ATENOLOL [Suspect]
     Route: 048

REACTIONS (1)
  - DRUG ADMINISTRATION ERROR [None]
